FAERS Safety Report 6339381-0 (Version None)
Quarter: 2009Q3

REPORT INFORMATION
  Report Type: 
  Country: None (occurrence: None)
  Receive Date: 20090903
  Receipt Date: 20090902
  Transmission Date: 20100115
  Serious: Yes (Other)
  Sender: FDA-Public Use
  Company Number: US-PFIZER INC-2009234843

PATIENT
  Sex: Female
  Weight: 57.143 kg

DRUGS (1)
  1. ZOLOFT [Suspect]
     Indication: DEPRESSION
     Dosage: UNK

REACTIONS (15)
  - ADRENAL DISORDER [None]
  - AMNESIA [None]
  - CANDIDIASIS [None]
  - CONSTIPATION [None]
  - DEPENDENCE [None]
  - DEPRESSION [None]
  - FEAR [None]
  - FOOD ALLERGY [None]
  - HYPOGLYCAEMIA [None]
  - INSOMNIA [None]
  - LOSS OF CONSCIOUSNESS [None]
  - MULTIPLE CHEMICAL SENSITIVITY [None]
  - QUALITY OF LIFE DECREASED [None]
  - SUICIDAL IDEATION [None]
  - WITHDRAWAL SYNDROME [None]
